FAERS Safety Report 25076296 (Version 1)
Quarter: 2025Q1

REPORT INFORMATION
  Report Type: Spontaneous
  Country: US (occurrence: US)
  Receive Date: 20250313
  Receipt Date: 20250313
  Transmission Date: 20250409
  Serious: Yes (Hospitalization, Other)
  Sender: ACERUS PHARMACEUTICALS CORPORATION
  Company Number: US-ACERUSPHRM-2024-US-000034

PATIENT
  Sex: Male

DRUGS (3)
  1. TESTOSTERONE [Suspect]
     Active Substance: TESTOSTERONE
     Indication: Blood testosterone decreased
  2. HEPARIN [Concomitant]
     Active Substance: HEPARIN SODIUM
     Indication: Venous thrombosis
  3. ELIQUIS [Concomitant]
     Active Substance: APIXABAN
     Indication: Venous thrombosis
     Route: 048

REACTIONS (3)
  - Deep vein thrombosis [Unknown]
  - Venous thrombosis [Unknown]
  - Pulmonary embolism [Unknown]
